FAERS Safety Report 19905430 (Version 1)
Quarter: 2021Q4

REPORT INFORMATION
  Report Type: Spontaneous
  Country: CN (occurrence: CN)
  Receive Date: 20211001
  Receipt Date: 20211001
  Transmission Date: 20220303
  Serious: Yes (Other)
  Sender: FDA-Public Use
  Company Number: CN-NAPPMUNDI-GBR-2021-0090872

PATIENT
  Age: 69 Year
  Sex: Male
  Weight: 62 kg

DRUGS (5)
  1. OXYCONTIN [Suspect]
     Active Substance: OXYCODONE HYDROCHLORIDE
     Indication: Analgesic therapy
     Dosage: 30 MG, Q12H
     Route: 048
     Dates: start: 20210820, end: 20210826
  2. MORPHINE HYDROCHLORIDE [Suspect]
     Active Substance: MORPHINE HYDROCHLORIDE
     Indication: Analgesic therapy
     Dosage: 5 MG, AS NECESSARY
     Route: 058
     Dates: start: 20210815, end: 20210826
  3. MORPHINE HYDROCHLORIDE [Suspect]
     Active Substance: MORPHINE HYDROCHLORIDE
     Indication: Analgesic therapy
     Dosage: 90 MG, Q12H
     Route: 048
     Dates: start: 20210826, end: 20210903
  4. DIISOPROPYLAMINE DICHLOROACETATE W/DIPROPHYLL [Concomitant]
     Indication: Hepatic function abnormal
     Dosage: 80 MG, BID
     Route: 041
     Dates: start: 20210819, end: 20210918
  5. PHOSPHOLIPID [Concomitant]
     Active Substance: PHOSPHOLIPID
     Indication: Hepatic function abnormal
     Dosage: 456 MG, TID
     Route: 048
     Dates: start: 20210819, end: 20210912

REACTIONS (3)
  - Depressed level of consciousness [Recovering/Resolving]
  - Delirium [Recovering/Resolving]
  - Hallucination [Recovering/Resolving]

NARRATIVE: CASE EVENT DATE: 20210822
